FAERS Safety Report 4412941-X (Version None)
Quarter: 2004Q3

REPORT INFORMATION
  Report Type: 
  Country: None (occurrence: None)
  Receive Date: 20040802
  Receipt Date: 20030711
  Transmission Date: 20050211
  Serious: No
  Sender: FDA-Public Use
  Company Number: US-GLAXOSMITHKLINE-A0416328A

PATIENT
  Age: 8 Week
  Sex: Female

DRUGS (1)
  1. ZANTAC [Suspect]
     Indication: ILL-DEFINED DISORDER
     Route: 048

REACTIONS (3)
  - DIARRHOEA [None]
  - ILL-DEFINED DISORDER [None]
  - OVERDOSE [None]
